FAERS Safety Report 8125901-2 (Version None)
Quarter: 2012Q1

REPORT INFORMATION
  Report Type: 
  Country: None (occurrence: None)
  Receive Date: 20120209
  Receipt Date: 20120130
  Transmission Date: 20120608
  Serious: Yes (Hospitalization, Other)
  Sender: FDA-Public Use
  Company Number: US-ELI_LILLY_AND_COMPANY-US201003003644

PATIENT
  Sex: Male

DRUGS (12)
  1. DOXAZOSIN [Concomitant]
     Dosage: UNK
  2. GLIPIZIDE [Concomitant]
     Indication: DIABETES MELLITUS
     Dosage: UNK
  3. HUMALOG [Suspect]
     Dosage: UNK, PRN
     Route: 058
     Dates: start: 20040101
  4. HUMULIN N [Suspect]
     Indication: DIABETES MELLITUS
     Dates: end: 20040101
  5. HUMULIN R [Suspect]
     Indication: DIABETES MELLITUS
     Dates: end: 20040101
  6. PLAVIX [Concomitant]
     Dosage: UNK
  7. HUMALOG [Suspect]
     Indication: DIABETES MELLITUS
     Dosage: UNK
     Dates: start: 19960101
  8. HUMALOG [Suspect]
     Dosage: UNK, AS NEEDED
     Route: 058
     Dates: start: 20040101
  9. HUMALOG MIX 75/25 [Suspect]
     Indication: DIABETES MELLITUS
  10. GLUCOPHAGE [Concomitant]
  11. NOVOLOG [Concomitant]
  12. CRESTOR [Concomitant]
     Dosage: UNK

REACTIONS (25)
  - CEREBROVASCULAR ACCIDENT [None]
  - PARAESTHESIA [None]
  - INJECTION SITE PAIN [None]
  - NEUROPATHY PERIPHERAL [None]
  - WEIGHT INCREASED [None]
  - ACCIDENT [None]
  - CORONARY ARTERY OCCLUSION [None]
  - ANGIOPLASTY [None]
  - HEMIPARESIS [None]
  - KNEE OPERATION [None]
  - LOWER LIMB FRACTURE [None]
  - SLEEP APNOEA SYNDROME [None]
  - BLOOD GLUCOSE INCREASED [None]
  - CHONDROPATHY [None]
  - INJECTION SITE MASS [None]
  - NAIL OPERATION [None]
  - STENT PLACEMENT [None]
  - DRUG INEFFECTIVE [None]
  - HYPERSOMNIA [None]
  - CARDIAC PACEMAKER INSERTION [None]
  - FATIGUE [None]
  - HYPERTENSION [None]
  - OEDEMA PERIPHERAL [None]
  - ARTHRITIS [None]
  - HEAT RASH [None]
